FAERS Safety Report 19592797 (Version 1)
Quarter: 2021Q3

REPORT INFORMATION
  Report Type: Spontaneous
  Country: US (occurrence: US)
  Receive Date: 20210721
  Receipt Date: 20210721
  Transmission Date: 20211014
  Serious: Yes (Disabling)
  Sender: FDA-Public Use
  Company Number: None

PATIENT
  Age: 37 Year
  Sex: Female
  Weight: 50.8 kg

DRUGS (1)
  1. TRIAMCINOLONE .01% OINTMENT [Suspect]
     Active Substance: TRIAMCINOLONE
     Indication: ECZEMA
     Dates: start: 20160101, end: 20200715

REACTIONS (9)
  - Pain [None]
  - Insomnia [None]
  - Drug withdrawal syndrome [None]
  - Eczema [None]
  - Skin weeping [None]
  - Pregnancy [None]
  - Drug exposure before pregnancy [None]
  - Skin fissures [None]
  - Alopecia [None]

NARRATIVE: CASE EVENT DATE: 20200715
